FAERS Safety Report 7266148-1 (Version None)
Quarter: 2011Q1

REPORT INFORMATION
  Report Type: 
  Country: None (occurrence: None)
  Receive Date: 20110120
  Receipt Date: 20110105
  Transmission Date: 20110831
  Serious: Yes (Other)
  Sender: FDA-Public Use
  Company Number: 2010AP002682

PATIENT
  Age: 69 Year
  Sex: Male

DRUGS (12)
  1. ASPIRIN [Suspect]
     Indication: MYOCARDIAL INFARCTION
     Dosage: 75 MG, QD;
  2. ASPIRIN [Suspect]
     Indication: CARDIAC ARREST
     Dosage: 75 MG, QD;
  3. BISOPROLOL (BISOPROLOL) [Suspect]
     Indication: BLOOD PRESSURE INCREASED
     Dosage: 1.25 MG, QD
  4. CIRTUCISTERIUD BIS [Concomitant]
  5. OMEPRAZOLE [Concomitant]
  6. MELOXICAM [Suspect]
     Indication: PAIN
     Dosage: 7..5 MG, QD;
     Dates: start: 20100916
  7. RAMIPRIL [Suspect]
     Indication: BLOOD PRESSURE INCREASED
     Dosage: 1.25 MG, QD,
  8. FLUTICASONE PROPIONATE [Concomitant]
  9. ISOSORBIDE DINITRATE [Concomitant]
  10. ALBUTEROL [Concomitant]
  11. QYUBUBE [Concomitant]
  12. TUITRIOUYN BRINUDE [Concomitant]

REACTIONS (9)
  - DELIRIUM [None]
  - DEPRESSED LEVEL OF CONSCIOUSNESS [None]
  - CONFUSIONAL STATE [None]
  - DRUG INTERACTION [None]
  - DIARRHOEA [None]
  - HALLUCINATION [None]
  - CHROMATURIA [None]
  - EYE MOVEMENT DISORDER [None]
  - GAIT DISTURBANCE [None]
